FAERS Safety Report 7591183-3 (Version None)
Quarter: 2011Q3

REPORT INFORMATION
  Report Type: 
  Country: None (occurrence: None)
  Receive Date: 20110705
  Receipt Date: 20110624
  Transmission Date: 20111222
  Serious: Yes (Other)
  Sender: FDA-Public Use
  Company Number: US-ASTRAZENECA-2011SE38444

PATIENT
  Age: 59 Year
  Sex: Female

DRUGS (5)
  1. ATACAND [Suspect]
     Route: 048
  2. NORVASC [Suspect]
     Route: 065
  3. LISINOPRIL [Suspect]
     Route: 048
  4. CRESTOR [Suspect]
     Route: 048
  5. TOPROL-XL [Suspect]
     Route: 048

REACTIONS (3)
  - BLOOD PRESSURE DECREASED [None]
  - CEREBROVASCULAR ACCIDENT [None]
  - ILL-DEFINED DISORDER [None]
